FAERS Safety Report 21253870 (Version 1)
Quarter: 2022Q3

REPORT INFORMATION
  Report Type: Spontaneous
  Country: US (occurrence: US)
  Receive Date: 20220825
  Receipt Date: 20220825
  Transmission Date: 20221026
  Serious: Yes (Other)
  Sender: FDA-Public Use
  Company Number: US-PHARMING-PHAUS2022000558

PATIENT

DRUGS (1)
  1. RUCONEST [Suspect]
     Active Substance: HUMAN C1-ESTERASE INHIBITOR
     Indication: Hereditary angioedema
     Dosage: 3175 IU, AS NEEDED
     Route: 042
     Dates: start: 202111

REACTIONS (3)
  - Pharyngeal swelling [Unknown]
  - Asthma [Unknown]
  - Dyspnoea [Unknown]
